FAERS Safety Report 15769569 (Version 1)
Quarter: 2018Q4

REPORT INFORMATION
  Report Type: Spontaneous
  Country: DK (occurrence: DK)
  Receive Date: 20181228
  Receipt Date: 20181228
  Transmission Date: 20190205
  Serious: Yes (Hospitalization)
  Sender: FDA-Public Use
  Company Number: DK-ALK-ABELLO A/S-2018AA004598

PATIENT

DRUGS (1)
  1. GRAZAX [Suspect]
     Active Substance: PHLEUM PRATENSE POLLEN
     Indication: PRODUCT USED FOR UNKNOWN INDICATION
     Dosage: 75 SQ-T
     Dates: start: 20181210

REACTIONS (3)
  - Lip blister [Recovered/Resolved]
  - Mouth swelling [Unknown]
  - Oropharyngeal swelling [Unknown]

NARRATIVE: CASE EVENT DATE: 20181210
